FAERS Safety Report 6325381-3 (Version None)
Quarter: 2009Q3

REPORT INFORMATION
  Report Type: 
  Country: None (occurrence: None)
  Receive Date: 20090824
  Receipt Date: 20090814
  Transmission Date: 20100115
  Serious: Yes (Other)
  Sender: FDA-Public Use
  Company Number: JP-NOVOPROD-289735

PATIENT
  Age: 51 Year
  Sex: Male

DRUGS (12)
  1. NOVORAPID CHU FLEXPEN [Suspect]
     Indication: TYPE 2 DIABETES MELLITUS
     Dosage: 22-24 IU
     Route: 058
     Dates: start: 20071008
  2. NESP [Concomitant]
     Route: 048
     Dates: start: 20090619
  3. BIOFERMIN [Concomitant]
     Route: 048
  4. DIOVAN                             /01319601/ [Concomitant]
     Route: 048
  5. ROCALTROL [Concomitant]
     Route: 048
  6. SENNOSIDE                          /00571901/ [Concomitant]
     Route: 048
  7. ADALAT [Concomitant]
     Route: 048
  8. RIZABEN [Concomitant]
     Route: 048
  9. ZESULAN [Concomitant]
     Route: 048
  10. KINEDAK [Concomitant]
     Route: 048
  11. RENAGEL                            /01459901/ [Concomitant]
     Route: 048
  12. CALTAN [Concomitant]
     Route: 048

REACTIONS (4)
  - BLOOD GLUCOSE DECREASED [None]
  - DEVICE FAILURE [None]
  - DIALYSIS [None]
  - FEELING ABNORMAL [None]
